FAERS Safety Report 9311712 (Version 2)
Quarter: 2013Q2

REPORT INFORMATION
  Report Type: Spontaneous
  Country: DE (occurrence: DE)
  Receive Date: 20130528
  Receipt Date: 20130618
  Transmission Date: 20140414
  Serious: Yes (Hospitalization)
  Sender: FDA-Public Use
  Company Number: DE-AMGEN-DEUSP2013037093

PATIENT
  Age: 73 Year
  Sex: Male

DRUGS (9)
  1. TILIDIN [Concomitant]
  2. LYRICA [Concomitant]
  3. NOVAMINSULFON [Concomitant]
  4. LISINOPRIL [Concomitant]
  5. CALCIUM [Concomitant]
     Dosage: 1000 MG, UNK
     Dates: start: 20130222
  6. VITAMIN D3 [Concomitant]
     Dosage: 800 UNK, UNK
     Dates: start: 20130222
  7. XGEVA [Suspect]
     Indication: METASTASES TO BONE
     Dosage: 120 MG, UNK
     Route: 058
     Dates: start: 20130227
  8. BICALUTAMIDE [Concomitant]
  9. LUTEINIZING HORMONE-RELEASING HORMONE [Concomitant]

REACTIONS (4)
  - Confusional state [Recovered/Resolved]
  - Convulsion [Unknown]
  - Paraesthesia [Unknown]
  - Blood calcium decreased [Not Recovered/Not Resolved]
